FAERS Safety Report 17713402 (Version 1)
Quarter: 2020Q2

REPORT INFORMATION
  Report Type: Spontaneous
  Country: US (occurrence: US)
  Receive Date: 20200425
  Receipt Date: 20200425
  Transmission Date: 20200714
  Serious: Yes (Hospitalization)
  Sender: FDA-Public Use
  Company Number: None

PATIENT
  Age: 41 Year
  Sex: Female
  Weight: 148.4 kg

DRUGS (10)
  1. DAUNORUBICIN [Suspect]
     Active Substance: DAUNORUBICIN
  2. ETOPOSIDE (VP-16) [Suspect]
     Active Substance: ETOPOSIDE
  3. METHOTREXATE. [Concomitant]
     Active Substance: METHOTREXATE
  4. PREDNISONE. [Suspect]
     Active Substance: PREDNISONE
  5. CYCLOPHOSPHAMIDE (26271) [Suspect]
     Active Substance: CYCLOPHOSPHAMIDE
     Dates: start: 20150525
  6. CYTARABINE. [Suspect]
     Active Substance: CYTARABINE
     Dates: start: 20150703
  7. MERCAPTOPURINE. [Suspect]
     Active Substance: MERCAPTOPURINE
  8. VINCRISTINE SULFATE. [Suspect]
     Active Substance: VINCRISTINE SULFATE
  9. DEXAMETHASONE. [Suspect]
     Active Substance: DEXAMETHASONE
  10. ONCASPAR [Suspect]
     Active Substance: PEGASPARGASE

REACTIONS (15)
  - Acute lymphocytic leukaemia [None]
  - Pneumonitis [None]
  - Abdominal pain [None]
  - Abdominal pain upper [None]
  - Atelectasis [None]
  - Insomnia [None]
  - Chest pain [None]
  - Vomiting [None]
  - Hyperbilirubinaemia [None]
  - Pyrexia [None]
  - Platelet count decreased [None]
  - Splenomegaly [None]
  - Depression [None]
  - Nausea [None]
  - Leukaemia recurrent [None]

NARRATIVE: CASE EVENT DATE: 20160715
